FAERS Safety Report 21527523 (Version 1)
Quarter: 2022Q4

REPORT INFORMATION
  Report Type: Spontaneous
  Country: US (occurrence: US)
  Receive Date: 20221031
  Receipt Date: 20221031
  Transmission Date: 20230112
  Serious: Yes (Other)
  Sender: FDA-Public Use
  Company Number: US-Accord-283733

PATIENT
  Age: 73 Year
  Sex: Male

DRUGS (8)
  1. METHOTREXATE [Suspect]
     Active Substance: METHOTREXATE
     Indication: Lymphoma
     Dosage: HIGH DOSE
     Route: 042
  2. RITUXIMAB [Suspect]
     Active Substance: RITUXIMAB
     Indication: Lymphoma
     Dosage: 375MG/M2 ON DAY 1
     Route: 042
  3. LEUCOVORIN [Suspect]
     Active Substance: LEUCOVORIN
     Indication: Lymphoma
  4. DOXORUBICIN [Suspect]
     Active Substance: DOXORUBICIN
     Indication: Lymphoma
     Route: 042
  5. VINCRISTINE [Suspect]
     Active Substance: VINCRISTINE
     Indication: Lymphoma
     Dosage: 2MG ON DAY 4
     Route: 042
  6. CYCLOPHOSPHAMIDE [Suspect]
     Active Substance: CYCLOPHOSPHAMIDE
     Indication: Lymphoma
     Route: 042
  7. PREDNISONE [Suspect]
     Active Substance: PREDNISONE
     Indication: Lymphoma
     Route: 048
  8. PEGFILGRASTIM [Suspect]
     Active Substance: PEGFILGRASTIM
     Indication: Lymphoma
     Dosage: ON DAY 6 OF EVERY CYCLE.
     Route: 058

REACTIONS (4)
  - Febrile neutropenia [Unknown]
  - Oral herpes [Unknown]
  - Escherichia bacteraemia [Unknown]
  - Urinary tract infection [Unknown]
